FAERS Safety Report 16011467 (Version 1)
Quarter: 2019Q1

REPORT INFORMATION
  Report Type: Spontaneous
  Country: US (occurrence: US)
  Receive Date: 20190227
  Receipt Date: 20190227
  Transmission Date: 20190418
  Serious: Yes (Other)
  Sender: FDA-Public Use
  Company Number: US-AMGEN-USASP2019026849

PATIENT
  Sex: Female

DRUGS (1)
  1. ENBREL [Suspect]
     Active Substance: ETANERCEPT
     Indication: RHEUMATOID ARTHRITIS
     Dosage: 50 MG, QWK
     Route: 065
     Dates: start: 2004, end: 201310

REACTIONS (6)
  - Arthropathy [Unknown]
  - Contusion [Unknown]
  - Spinal disorder [Unknown]
  - Skin cancer [Unknown]
  - Malignant melanoma [Unknown]
  - Wrong technique in product usage process [Unknown]
